FAERS Safety Report 4359948-9 (Version None)
Quarter: 2004Q2

REPORT INFORMATION
  Report Type: 
  Country: None (occurrence: None)
  Receive Date: 20040513
  Receipt Date: 20040504
  Transmission Date: 20050107
  Serious: Yes (Hospitalization)
  Sender: FDA-Public Use
  Company Number: 04P-062-0259687-00

PATIENT
  Sex: Female

DRUGS (1)
  1. BIAXIN [Suspect]
     Indication: RESPIRATORY TRACT INFECTION
     Dosage: PER ORAL
     Route: 048

REACTIONS (1)
  - COLLAGEN DISORDER [None]
